FAERS Safety Report 18837709 (Version 1)
Quarter: 2021Q1

REPORT INFORMATION
  Report Type: Spontaneous
  Country: US (occurrence: US)
  Receive Date: 20210203
  Receipt Date: 20210203
  Transmission Date: 20210419
  Serious: No
  Sender: FDA-Public Use
  Company Number: US-ALLERGAN-2027571US

PATIENT
  Sex: Female

DRUGS (70)
  1. BOTOX COSMETIC [Suspect]
     Active Substance: ONABOTULINUMTOXINA
     Dosage: 25 UNITS, SINGLE
     Dates: start: 20170801, end: 20170801
  2. BOTOX COSMETIC [Suspect]
     Active Substance: ONABOTULINUMTOXINA
     Dosage: 5 UNITS, SINGLE
     Dates: start: 20160801, end: 20160801
  3. JUVEDERM ULTRA XC [Suspect]
     Active Substance: HYALURONIC ACID\LIDOCAINE HYDROCHLORIDE
     Dosage: 1 SYRINGE
     Dates: start: 20181228, end: 20181228
  4. JUVEDERM ULTRA XC [Suspect]
     Active Substance: HYALURONIC ACID\LIDOCAINE HYDROCHLORIDE
     Dosage: 1 SYRINGE
     Dates: start: 20161019, end: 20161019
  5. JUVEDERM ULTRA XC [Suspect]
     Active Substance: HYALURONIC ACID\LIDOCAINE HYDROCHLORIDE
     Dosage: 1 SYRINGE
     Dates: start: 20160520, end: 20160520
  6. VOLUMA [Suspect]
     Active Substance: UNSPECIFIED INGREDIENT
     Dosage: 1 SYRINGE
     Dates: start: 20200204, end: 20200204
  7. VOLUMA [Suspect]
     Active Substance: UNSPECIFIED INGREDIENT
     Dosage: 1 SYRINGE
     Dates: start: 20190318, end: 20190318
  8. VOLUMA [Suspect]
     Active Substance: UNSPECIFIED INGREDIENT
     Dosage: 1 SYRINGE
     Dates: start: 20171101, end: 20171101
  9. RESTYLANE DEFYNE [Suspect]
     Active Substance: HYALURONIC ACID\LIDOCAINE
     Dosage: 1 SYRINGE
     Dates: start: 20180201, end: 20180201
  10. BOTOX COSMETIC [Suspect]
     Active Substance: ONABOTULINUMTOXINA
     Dosage: 5 UNITS, SINGLE
     Dates: start: 20150212, end: 20150212
  11. JUVEDERM ULTRA XC [Suspect]
     Active Substance: HYALURONIC ACID\LIDOCAINE HYDROCHLORIDE
     Dosage: 1 SYRINGE
     Dates: start: 20200204, end: 20200204
  12. JUVEDERM ULTRA XC [Suspect]
     Active Substance: HYALURONIC ACID\LIDOCAINE HYDROCHLORIDE
     Dosage: 1 SYRINGE
     Dates: start: 20190815, end: 20190815
  13. JUVEDERM ULTRA XC [Suspect]
     Active Substance: HYALURONIC ACID\LIDOCAINE HYDROCHLORIDE
     Dosage: 1 SYRINGE
     Dates: start: 20190415, end: 20190415
  14. JUVEDERM ULTRA XC [Suspect]
     Active Substance: HYALURONIC ACID\LIDOCAINE HYDROCHLORIDE
     Dosage: 2 SYRINGES
     Dates: start: 20170801, end: 20170801
  15. VOLUMA [Suspect]
     Active Substance: UNSPECIFIED INGREDIENT
     Dosage: 2 SYRINGES
     Dates: start: 20161215, end: 20161215
  16. BOTOX COSMETIC [Suspect]
     Active Substance: ONABOTULINUMTOXINA
     Indication: SKIN WRINKLING
     Dosage: 5 UNITS, SINGLE
     Dates: start: 20200702, end: 20200702
  17. BOTOX COSMETIC [Suspect]
     Active Substance: ONABOTULINUMTOXINA
     Indication: SKIN WRINKLING
     Dosage: 5 UNITS, SINGLE
     Dates: start: 20200702, end: 20200702
  18. BOTOX COSMETIC [Suspect]
     Active Substance: ONABOTULINUMTOXINA
     Dosage: 15 UNITS, SINGLE
     Dates: start: 20160801, end: 20160801
  19. BOTOX COSMETIC [Suspect]
     Active Substance: ONABOTULINUMTOXINA
     Dosage: 10 UNITS, SINGLE
     Dates: start: 20150212, end: 20150212
  20. BOTOX COSMETIC [Suspect]
     Active Substance: ONABOTULINUMTOXINA
     Dosage: 20 UNITS, SINGLE
     Dates: start: 20150212, end: 20150212
  21. JUVEDERM ULTRA XC [Suspect]
     Active Substance: HYALURONIC ACID\LIDOCAINE HYDROCHLORIDE
     Dosage: 2 SYRINGES
     Dates: start: 20161013, end: 20161013
  22. JUVEDERM ULTRA XC [Suspect]
     Active Substance: HYALURONIC ACID\LIDOCAINE HYDROCHLORIDE
     Dosage: 2 SYRINGES
     Dates: start: 20160408, end: 20160408
  23. JUVEDERM ULTRA XC [Suspect]
     Active Substance: HYALURONIC ACID\LIDOCAINE HYDROCHLORIDE
     Dosage: 2 SYRINGES
     Dates: start: 20160325, end: 20160325
  24. VOLUMA [Suspect]
     Active Substance: UNSPECIFIED INGREDIENT
     Dosage: 2 SYRINGES
     Dates: start: 20170816, end: 20170816
  25. VOLUMA [Suspect]
     Active Substance: UNSPECIFIED INGREDIENT
     Dosage: 1 SYRINGE
     Dates: start: 20161220, end: 20161220
  26. BOTOX COSMETIC [Suspect]
     Active Substance: ONABOTULINUMTOXINA
     Dosage: 5 UNITS, SINGLE
     Dates: start: 20170801, end: 20170801
  27. BOTOX COSMETIC [Suspect]
     Active Substance: ONABOTULINUMTOXINA
     Dosage: 15 UNITS, SINGLE
     Dates: start: 20160325, end: 20160325
  28. BOTOX COSMETIC [Suspect]
     Active Substance: ONABOTULINUMTOXINA
     Dosage: 2 UNITS, SINGLE
     Dates: start: 20160325, end: 20160325
  29. BOTOX COSMETIC [Suspect]
     Active Substance: ONABOTULINUMTOXINA
     Dosage: 5 UNITS, SINGLE
     Dates: start: 20151218, end: 20151218
  30. JUVEDERM ULTRA XC [Suspect]
     Active Substance: HYALURONIC ACID\LIDOCAINE HYDROCHLORIDE
     Dosage: 1 SYRINGE
     Dates: start: 20170308, end: 20170308
  31. VOLUMA [Suspect]
     Active Substance: UNSPECIFIED INGREDIENT
     Dosage: 1 SYRINGE
     Dates: start: 20180518, end: 20180518
  32. JUVEDERM ULTRA XC [Suspect]
     Active Substance: HYALURONIC ACID\LIDOCAINE HYDROCHLORIDE
     Indication: PRODUCT USED FOR UNKNOWN INDICATION
     Dosage: 1 SYRINGE
     Dates: start: 20200702, end: 20200702
  33. JUVEDERM ULTRA XC [Suspect]
     Active Substance: HYALURONIC ACID\LIDOCAINE HYDROCHLORIDE
     Dosage: 2 SYRINGES
     Dates: start: 20191021, end: 20191021
  34. JUVEDERM ULTRA XC [Suspect]
     Active Substance: HYALURONIC ACID\LIDOCAINE HYDROCHLORIDE
     Dosage: 1 SYRINGE
     Dates: start: 20181214, end: 20181214
  35. JUVEDERM ULTRA XC [Suspect]
     Active Substance: HYALURONIC ACID\LIDOCAINE HYDROCHLORIDE
     Dosage: 2 SYRINGES
     Dates: start: 20170516, end: 20170516
  36. JUVEDERM ULTRA XC [Suspect]
     Active Substance: HYALURONIC ACID\LIDOCAINE HYDROCHLORIDE
     Dosage: 1 SYRINGE
     Dates: start: 20160708, end: 20160708
  37. JUVEDERM ULTRA XC [Suspect]
     Active Substance: HYALURONIC ACID\LIDOCAINE HYDROCHLORIDE
     Dosage: 1 SYRINGE
     Dates: start: 20151218, end: 20151218
  38. RESTYLANE DEFYNE [Suspect]
     Active Substance: HYALURONIC ACID\LIDOCAINE
     Indication: PRODUCT USED FOR UNKNOWN INDICATION
     Dosage: 1 SYRINGE
     Dates: start: 20180420, end: 20180420
  39. RESTYLANE DEFYNE [Suspect]
     Active Substance: HYALURONIC ACID\LIDOCAINE
     Dosage: 1 SYRINGE
     Dates: start: 20180301, end: 20180301
  40. BOTOX COSMETIC [Suspect]
     Active Substance: ONABOTULINUMTOXINA
     Indication: SKIN WRINKLING
     Dosage: 10 UNITS, SINGLE
     Dates: start: 20200702, end: 20200702
  41. BOTOX COSMETIC [Suspect]
     Active Substance: ONABOTULINUMTOXINA
     Dosage: 10 UNITS, SINGLE
     Dates: start: 20170801, end: 20170801
  42. BOTOX COSMETIC [Suspect]
     Active Substance: ONABOTULINUMTOXINA
     Dosage: 10 UNITS, SINGLE
     Dates: start: 20160801, end: 20160801
  43. JUVEDERM ULTRA XC [Suspect]
     Active Substance: HYALURONIC ACID\LIDOCAINE HYDROCHLORIDE
     Dosage: 1 SYRINGE
     Dates: start: 20180717, end: 20180717
  44. JUVEDERM ULTRA XC [Suspect]
     Active Substance: HYALURONIC ACID\LIDOCAINE HYDROCHLORIDE
     Dosage: 1 SYRINGE
     Dates: start: 20160429, end: 20160429
  45. JUVEDERM ULTRA XC [Suspect]
     Active Substance: HYALURONIC ACID\LIDOCAINE HYDROCHLORIDE
     Dosage: 2 SYRINGES
     Dates: start: 20151202, end: 20151202
  46. VOLUMA [Suspect]
     Active Substance: UNSPECIFIED INGREDIENT
     Indication: PRODUCT USED FOR UNKNOWN INDICATION
     Dosage: 1 SYRINGE
     Dates: start: 20200702, end: 20200702
  47. VOLUMA [Suspect]
     Active Substance: UNSPECIFIED INGREDIENT
     Dosage: 1 SYRINGE
     Dates: start: 20180201, end: 20180201
  48. BOTOX COSMETIC [Suspect]
     Active Substance: ONABOTULINUMTOXINA
     Dosage: 20 UNITS, SINGLE
     Dates: start: 20160801, end: 20160801
  49. JUVEDERM ULTRA XC [Suspect]
     Active Substance: HYALURONIC ACID\LIDOCAINE HYDROCHLORIDE
     Dosage: 1 SYRINGE
     Dates: start: 20190225, end: 20190225
  50. JUVEDERM ULTRA XC [Suspect]
     Active Substance: HYALURONIC ACID\LIDOCAINE HYDROCHLORIDE
     Dosage: 1 SYRINGE
     Dates: start: 20180816, end: 20180816
  51. JUVEDERM ULTRA XC [Suspect]
     Active Substance: HYALURONIC ACID\LIDOCAINE HYDROCHLORIDE
     Dosage: 2 SYRINGES
     Dates: start: 20161215, end: 20161215
  52. JUVEDERM ULTRA XC [Suspect]
     Active Substance: HYALURONIC ACID\LIDOCAINE HYDROCHLORIDE
     Dosage: 2 SYRINGES
     Dates: start: 20170620, end: 20170620
  53. JUVEDERM ULTRA XC [Suspect]
     Active Substance: HYALURONIC ACID\LIDOCAINE HYDROCHLORIDE
     Dosage: 1 SYRINGE
     Dates: start: 20160420, end: 20160420
  54. VOLUMA [Suspect]
     Active Substance: UNSPECIFIED INGREDIENT
     Dosage: 1 SYRINGE
     Dates: start: 20190607, end: 20190607
  55. VOLUMA [Suspect]
     Active Substance: UNSPECIFIED INGREDIENT
     Dosage: 1 SYRINGE
     Dates: start: 20181214, end: 20181214
  56. VOLUMA [Suspect]
     Active Substance: UNSPECIFIED INGREDIENT
     Dosage: 1 SYRINGE
     Dates: start: 20180601, end: 20180601
  57. HYLANEX (HYALURONIC ACID) [Suspect]
     Active Substance: HYALURONIC ACID
     Indication: PRODUCT USED FOR UNKNOWN INDICATION
     Dosage: 0.3 UNITS, SINGLE
     Dates: start: 20200706, end: 20200706
  58. HYLANEX (HYALURONIC ACID) [Suspect]
     Active Substance: HYALURONIC ACID
     Dosage: 0.2 UNITS, SINGLE
     Dates: start: 20200702, end: 20200702
  59. RESTYLANE DEFYNE [Suspect]
     Active Substance: HYALURONIC ACID\LIDOCAINE
     Dosage: 1 SYRINGE
     Dates: start: 20180307, end: 20180307
  60. RESTYLANE DEFYNE [Suspect]
     Active Substance: HYALURONIC ACID\LIDOCAINE
     Dosage: 2 SYRINGES
     Dates: start: 20171201, end: 20171201
  61. BOTOX COSMETIC [Suspect]
     Active Substance: ONABOTULINUMTOXINA
     Indication: SKIN WRINKLING
     Dosage: 20 UNITS, SINGLE
     Dates: start: 20200702, end: 20200702
  62. BOTOX COSMETIC [Suspect]
     Active Substance: ONABOTULINUMTOXINA
     Indication: SKIN WRINKLING
     Dosage: 20 UNITS, SINGLE
     Dates: start: 20200702, end: 20200702
  63. BOTOX COSMETIC [Suspect]
     Active Substance: ONABOTULINUMTOXINA
     Dosage: 20 UNITS, SINGLE
     Dates: start: 20170801, end: 20170801
  64. BOTOX COSMETIC [Suspect]
     Active Substance: ONABOTULINUMTOXINA
     Dosage: 15 UNITS, SINGLE
     Dates: start: 20150212, end: 20150212
  65. JUVEDERM ULTRA XC [Suspect]
     Active Substance: HYALURONIC ACID\LIDOCAINE HYDROCHLORIDE
     Dosage: 1 SYRINGE
     Dates: start: 20180615, end: 20180615
  66. JUVEDERM ULTRA XC [Suspect]
     Active Substance: HYALURONIC ACID\LIDOCAINE HYDROCHLORIDE
     Dosage: 2 SYRINGES
     Dates: start: 20170301, end: 20170301
  67. JUVEDERM ULTRA XC [Suspect]
     Active Substance: HYALURONIC ACID\LIDOCAINE HYDROCHLORIDE
     Dosage: 2 SYRINGES
     Dates: start: 20160801, end: 20160801
  68. VOLUMA [Suspect]
     Active Substance: UNSPECIFIED INGREDIENT
     Dosage: 1 SYRINGE
     Dates: start: 20190916, end: 20190916
  69. VOLUMA [Suspect]
     Active Substance: UNSPECIFIED INGREDIENT
     Dosage: 1 SYRINGE
     Dates: start: 20180726, end: 20180726
  70. RESTYLANE DEFINE REFINE [Suspect]
     Active Substance: HYALURONIC ACID\LIDOCAINE
     Indication: PRODUCT USED FOR UNKNOWN INDICATION
     Dosage: 1 SYRINGE
     Dates: start: 20171016, end: 20171016

REACTIONS (3)
  - Nodule [Not Recovered/Not Resolved]
  - Oedema [Not Recovered/Not Resolved]
  - Off label use [Unknown]
